FAERS Safety Report 5154887-8 (Version None)
Quarter: 2006Q4

REPORT INFORMATION
  Report Type: 
  Country: None (occurrence: None)
  Receive Date: 20061121
  Receipt Date: 20061113
  Transmission Date: 20070319
  Serious: Yes (Other)
  Sender: FDA-Public Use
  Company Number: ES-JNJFOC-20060806660

PATIENT
  Age: 32 Year
  Sex: Male

DRUGS (4)
  1. REMICADE [Suspect]
     Indication: ANKYLOSING SPONDYLITIS
     Route: 042
  2. INACID [Concomitant]
     Route: 065
  3. OMEPRAZOLE [Concomitant]
     Route: 065
  4. ENALAPRIL MALEATE [Concomitant]
     Indication: HYPERTENSION
     Route: 065

REACTIONS (9)
  - ASTHENIA [None]
  - BLOOD IRON ABNORMAL [None]
  - BRADYPHRENIA [None]
  - DEMYELINATION [None]
  - DISTURBANCE IN ATTENTION [None]
  - FATIGUE [None]
  - HAEMOCHROMATOSIS [None]
  - TRANSAMINASES INCREASED [None]
  - VISUAL DISTURBANCE [None]
